FAERS Safety Report 24980604 (Version 1)
Quarter: 2025Q1

REPORT INFORMATION
  Report Type: Spontaneous
  Country: US (occurrence: None)
  Receive Date: 20250214
  Receipt Date: 20250214
  Transmission Date: 20250408
  Serious: No
  Sender: FDA-CTU
  Company Number: None

PATIENT
  Age: 64 Year
  Sex: Female

DRUGS (2)
  1. ORENCIA [Suspect]
     Active Substance: ABATACEPT
     Route: 058
     Dates: start: 20250102, end: 20250203
  2. ORENCIA [Concomitant]
     Active Substance: ABATACEPT
     Dates: start: 20250102, end: 20250203

REACTIONS (3)
  - Rash [None]
  - Night sweats [None]
  - Insomnia [None]

NARRATIVE: CASE EVENT DATE: 20250202
